FAERS Safety Report 8474782-6 (Version None)
Quarter: 2012Q2

REPORT INFORMATION
  Report Type: 
  Country: None (occurrence: None)
  Receive Date: 20120628
  Receipt Date: 20120626
  Transmission Date: 20120825
  Serious: No
  Sender: FDA-Public Use
  Company Number: US-PFIZER INC-2012154695

PATIENT
  Sex: Female
  Weight: 55 kg

DRUGS (2)
  1. LYRICA [Suspect]
     Indication: PAIN
     Dosage: 75 MG, 2X/DAY
     Route: 048
     Dates: start: 20120301
  2. NORGESTIMATE AND ETHINYL ESTRADIOL [Concomitant]
     Indication: CONTRACEPTION
     Dosage: UNK

REACTIONS (2)
  - MUSCLE SPASMS [None]
  - DIZZINESS [None]
